FAERS Safety Report 23240086 (Version 4)
Quarter: 2024Q2

REPORT INFORMATION
  Report Type: Spontaneous
  Country: CA (occurrence: CA)
  Receive Date: 20231129
  Receipt Date: 20240618
  Transmission Date: 20240716
  Serious: Yes (Hospitalization, Other)
  Sender: FDA-Public Use
  Company Number: None

PATIENT
  Age: 3 Decade
  Sex: Male

DRUGS (3)
  1. QUETIAPINE FUMARATE [Suspect]
     Active Substance: QUETIAPINE FUMARATE
     Indication: Bipolar disorder
     Dosage: 25 MG, ONCE PER DAY 25-100MG PO QHS
     Route: 048
  2. QUETIAPINE FUMARATE [Suspect]
     Active Substance: QUETIAPINE FUMARATE
     Dosage: 100 MG, ONCE PER DAY,  25-100MG PO QHS
     Route: 048
  3. ARIPIPRAZOLE [Suspect]
     Active Substance: ARIPIPRAZOLE
     Indication: Bipolar disorder
     Dosage: UNK,UNK
     Route: 048

REACTIONS (7)
  - Condition aggravated [Recovered/Resolved]
  - Substance use disorder [Recovered/Resolved]
  - Off label use [Recovered/Resolved]
  - Libido decreased [Unknown]
  - Apathy [Unknown]
  - Depressed mood [Unknown]
  - Sedation [Unknown]
